FAERS Safety Report 7783916-8 (Version None)
Quarter: 2011Q3

REPORT INFORMATION
  Report Type: 
  Country: None (occurrence: None)
  Receive Date: 20110928
  Receipt Date: 20110921
  Transmission Date: 20111222
  Serious: Yes (Hospitalization)
  Sender: FDA-Public Use
  Company Number: NL-GLAXOSMITHKLINE-B0750428A

PATIENT
  Sex: Female

DRUGS (5)
  1. ACYCLOVIR [Suspect]
     Indication: PRODUCT USED FOR UNKNOWN INDICATION
     Dosage: 700MG THREE TIMES PER DAY
     Route: 042
     Dates: start: 20110824, end: 20110825
  2. VALACYCLOVIR HYDROCHLORIDE [Suspect]
     Indication: HERPES ZOSTER
     Route: 048
     Dates: start: 20110713, end: 20110727
  3. COVERAM [Concomitant]
     Route: 048
  4. HYDROCHLOROTHIAZIDE [Concomitant]
     Dosage: 12.5MG PER DAY
     Route: 048
  5. ACYCLOVIR [Suspect]
     Indication: HERPES ZOSTER
     Dosage: 820MG THREE TIMES PER DAY
     Route: 042
     Dates: start: 20110728, end: 20110730

REACTIONS (1)
  - DELIRIUM [None]
